FAERS Safety Report 5737167-9 (Version None)
Quarter: 2008Q2

REPORT INFORMATION
  Report Type: 
  Country: None (occurrence: None)
  Receive Date: 20080513
  Receipt Date: 20080513
  Transmission Date: 20081010
  Serious: Yes (Hospitalization, Disabling)
  Sender: FDA-Public Use
  Company Number: None

PATIENT
  Age: 82 Year
  Sex: Female
  Weight: 88.4514 kg

DRUGS (1)
  1. DIGITEK 0.25 MG MEDCO [Suspect]
     Indication: TACHYCARDIA
     Dosage: 0.25 MG QD PO
     Route: 048
     Dates: start: 20080211, end: 20080228

REACTIONS (3)
  - BRADYCARDIA [None]
  - CARDIOACTIVE DRUG LEVEL INCREASED [None]
  - PHARMACEUTICAL PRODUCT COMPLAINT [None]
